FAERS Safety Report 21401325 (Version 1)
Quarter: 2022Q4

REPORT INFORMATION
  Report Type: Spontaneous
  Country: CN (occurrence: CN)
  Receive Date: 20221003
  Receipt Date: 20221003
  Transmission Date: 20230113
  Serious: Yes (Other)
  Sender: FDA-Public Use
  Company Number: None

PATIENT
  Age: 35 Year
  Sex: Female
  Weight: 43 kg

DRUGS (4)
  1. CYCLOPHOSPHAMIDE [Suspect]
     Active Substance: CYCLOPHOSPHAMIDE
     Indication: Breast cancer female
     Dosage: 0.8 G, QD, INJECTION DILUTED WITH SODIUM CHLORIDE (100 ML)
     Route: 041
     Dates: start: 20220815, end: 20220815
  2. PACLITAXEL [Suspect]
     Active Substance: PACLITAXEL
     Indication: Breast cancer female
     Dosage: 350 MG, QD, DILUTED WITH SODIUM CHLORIDE (70 ML)
     Route: 041
     Dates: start: 20220815, end: 20220815
  3. SODIUM CHLORIDE [Suspect]
     Active Substance: SODIUM CHLORIDE
     Indication: Medication dilution
     Dosage: 100 ML, QD, DILUTED WITH CYCLOPHOSPHAMIDE (0.8 G)
     Route: 041
     Dates: start: 20220815, end: 20220815
  4. SODIUM CHLORIDE [Suspect]
     Active Substance: SODIUM CHLORIDE
     Dosage: 70 ML, QD, DILUTED WITH PACLITAXEL (350 MG)
     Route: 041
     Dates: start: 20220815, end: 20220815

REACTIONS (3)
  - Condition aggravated [Recovering/Resolving]
  - Hepatic function abnormal [Recovering/Resolving]
  - Transaminases increased [Recovering/Resolving]

NARRATIVE: CASE EVENT DATE: 20220902
